APPROVED DRUG PRODUCT: ATHENTIA NEXT
Active Ingredient: LEVONORGESTREL
Strength: 1.5MG
Dosage Form/Route: TABLET;ORAL
Application: A206867 | Product #001
Applicant: AUROBINDO PHARMA LTD
Approved: Dec 8, 2015 | RLD: No | RS: No | Type: OTC